FAERS Safety Report 6419876-1 (Version None)
Quarter: 2009Q4

REPORT INFORMATION
  Report Type: 
  Country: None (occurrence: None)
  Receive Date: 20091029
  Receipt Date: 20080514
  Transmission Date: 20100525
  Serious: Yes (Disabling, Other)
  Sender: FDA-Public Use
  Company Number: US-MERCK-0802USA02036

PATIENT
  Age: 54 Year
  Sex: Female
  Weight: 75 kg

DRUGS (2)
  1. FOSAMAX [Suspect]
     Indication: OSTEOPOROSIS
     Route: 048
     Dates: start: 20041201
  2. FOSAMAX [Suspect]
     Indication: OSTEOPENIA
     Route: 048
     Dates: start: 20041201

REACTIONS (14)
  - ABDOMINAL DISCOMFORT [None]
  - ADVERSE EVENT [None]
  - ANXIETY [None]
  - CALCIUM DEFICIENCY [None]
  - DEPRESSION [None]
  - FATIGUE [None]
  - FRACTURE [None]
  - GALLBLADDER POLYP [None]
  - MUSCULOSKELETAL DISORDER [None]
  - OSTEONECROSIS [None]
  - POSTNASAL DRIP [None]
  - RESORPTION BONE INCREASED [None]
  - SLEEP APNOEA SYNDROME [None]
  - TENDONITIS [None]
